FAERS Safety Report 22139213 (Version 3)
Quarter: 2024Q4

REPORT INFORMATION
  Report Type: Spontaneous
  Country: JP (occurrence: JP)
  Receive Date: 20230327
  Receipt Date: 20241008
  Transmission Date: 20250115
  Serious: Yes (Hospitalization)
  Sender: ABBVIE
  Company Number: JP-TAKEDA-2022TJP043246

PATIENT
  Age: 63 Year
  Sex: Male
  Weight: 73.8 kg

DRUGS (10)
  1. LEUPROLIDE ACETATE [Suspect]
     Active Substance: LEUPROLIDE ACETATE
     Indication: Bulbospinal muscular atrophy congenital
     Dosage: 11.25 MILLIGRAM, Q3MONTHS
     Route: 058
     Dates: start: 20180425
  2. LANSOPRAZOLE [Concomitant]
     Active Substance: LANSOPRAZOLE
     Indication: Product used for unknown indication
     Dosage: 15 MILLIGRAM, QD
     Route: 048
  3. LANSOPRAZOLE [Concomitant]
     Active Substance: LANSOPRAZOLE
     Indication: Product used for unknown indication
     Dosage: 15 MILLIGRAM, QD
     Route: 048
  4. TEPRENONE [Concomitant]
     Active Substance: TEPRENONE
     Indication: Gastritis
     Dosage: TIME INTERVAL: 0.33333333 DAYS: 50 MILLIGRAM, TID
     Route: 048
  5. ZETIA [Concomitant]
     Active Substance: EZETIMIBE
     Indication: Hyperlipidaemia
     Dosage: 10 MILLIGRAM, QD
     Route: 048
     Dates: start: 20170608
  6. TELMISARTAN [Concomitant]
     Active Substance: TELMISARTAN
     Indication: Hypertension
     Dosage: 80 MILLIGRAM, QD
     Route: 048
  7. TRICHLORMETHIAZIDE [Concomitant]
     Active Substance: TRICHLORMETHIAZIDE
     Indication: Hypertension
     Dosage: 1 MILLIGRAM, QD
     Route: 048
  8. TEPRENONE [Concomitant]
     Active Substance: TEPRENONE
     Indication: Gastritis
     Dosage: TIME INTERVAL: 0.33333333 DAYS: 50 MILLIGRAM, TID
     Route: 048
  9. AMLODIPINE [Concomitant]
     Active Substance: AMLODIPINE BESYLATE
     Indication: Hypertension
     Dosage: 5 MILLIGRAM, QD
     Route: 048
     Dates: start: 20170526
  10. HYDROCHLOROTHIAZIDE\TELMISARTAN [Concomitant]
     Active Substance: HYDROCHLOROTHIAZIDE\TELMISARTAN
     Indication: Product used for unknown indication
     Dosage: 1 DOSAGE FORM
     Route: 065
     Dates: start: 20180320

REACTIONS (2)
  - Ligament sprain [Recovering/Resolving]
  - Fall [Recovering/Resolving]

NARRATIVE: CASE EVENT DATE: 20220120
